FAERS Safety Report 14754966 (Version 4)
Quarter: 2018Q2

REPORT INFORMATION
  Report Type: Report from Study
  Country: KR (occurrence: KR)
  Receive Date: 20180413
  Receipt Date: 20180509
  Transmission Date: 20180711
  Serious: Yes (Hospitalization)
  Sender: FDA-Public Use
  Company Number: KR-ROCHE-2104315

PATIENT
  Age: 53 Year
  Sex: Male
  Weight: 67.1 kg

DRUGS (8)
  1. BEVACIZUMAB. [Suspect]
     Active Substance: BEVACIZUMAB
     Indication: HEPATOCELLULAR CARCINOMA
     Dosage: MOST RECENT DOSE 960 MG PRIOR TO INFECTIOUS COLITIS: 23/MAR/2018?MOST RECENT DOSE 960 MG PRIOR TO DI
     Route: 042
     Dates: start: 20180323
  2. ENTECAVIR. [Concomitant]
     Active Substance: ENTECAVIR
     Indication: HEPATITIS B
     Route: 048
     Dates: start: 201301
  3. PROPRANOLOL [Concomitant]
     Active Substance: PROPRANOLOL HYDROCHLORIDE
     Route: 048
     Dates: start: 20160114
  4. ATEZOLIZUMAB. [Suspect]
     Active Substance: ATEZOLIZUMAB
     Indication: HEPATOCELLULAR CARCINOMA
     Dosage: MOST RECENT DOSE 1200 MG PRIOR TO INFECTIOUS COLITIS: 23/MAR/2018?MOST RECENT DOSE 1200 MG PRIOR TO
     Route: 042
     Dates: start: 20180323
  5. OXYCODONE HYDROCHLORIDE. [Concomitant]
     Active Substance: OXYCODONE HYDROCHLORIDE
     Indication: CANCER PAIN
     Route: 048
     Dates: start: 20180402, end: 20180409
  6. MOSAONE [Concomitant]
     Route: 048
     Dates: start: 20180426, end: 20180428
  7. PROMAC (POLAPREZINC) [Concomitant]
     Active Substance: POLAPREZINC
     Route: 048
     Dates: start: 20180426, end: 20180428
  8. TARGIN [Concomitant]
     Active Substance: NALOXONE HYDROCHLORIDE\OXYCODONE HYDROCHLORIDE
     Indication: CANCER PAIN
     Route: 048
     Dates: start: 20180402, end: 20180409

REACTIONS (2)
  - Colitis [Recovered/Resolved]
  - Diarrhoea [Recovered/Resolved]

NARRATIVE: CASE EVENT DATE: 20180405
